FAERS Safety Report 4819547-9 (Version None)
Quarter: 2005Q4

REPORT INFORMATION
  Report Type: 
  Country: None (occurrence: None)
  Receive Date: 20051102
  Receipt Date: 20051014
  Transmission Date: 20060501
  Serious: Yes (Other)
  Sender: FDA-Public Use
  Company Number: PAR_0384_2005

PATIENT
  Age: 84 Year
  Sex: Male
  Weight: 75.7507 kg

DRUGS (2)
  1. MEGESTROL ACETATE [Suspect]
     Indication: PANCREATIC CARCINOMA
     Dosage: 400 MG QDAY PO
     Route: 048
     Dates: start: 20051002
  2. MULTIPLE [Concomitant]

REACTIONS (1)
  - PROSTATIC HAEMORRHAGE [None]
